FAERS Safety Report 8782979 (Version 1)
Quarter: 2012Q4

REPORT INFORMATION
  Report Type: Report from Study
  Country: US (occurrence: US)
  Receive Date: 20120913
  Receipt Date: 20120913
  Transmission Date: 20130627
  Serious: No
  Sender: FDA-Public Use
  Company Number: US-VERTEX PHARMACEUTICAL INC.-AE-2012-008750

PATIENT

DRUGS (9)
  1. INCIVEK [Suspect]
     Indication: HEPATITIS C
     Route: 048
  2. RIBAPAK [Concomitant]
     Indication: HEPATITIS C
  3. PEGASYS PROCLICK [Concomitant]
  4. GLUCOSAMINE [Concomitant]
  5. MULTIVITAMIN [Concomitant]
  6. RAMIPRIL [Concomitant]
  7. FISH OIL [Concomitant]
  8. PERCOCET [Concomitant]
  9. HYDROXYZ HCL [Concomitant]

REACTIONS (7)
  - Muscle spasms [Unknown]
  - Myalgia [Unknown]
  - Headache [Unknown]
  - Pain [Unknown]
  - Back pain [Unknown]
  - Arthralgia [Unknown]
  - Rash [Unknown]
